FAERS Safety Report 9538535 (Version 1)
Quarter: 2013Q3

REPORT INFORMATION
  Report Type: Spontaneous
  Country: FR (occurrence: FR)
  Receive Date: 20130920
  Receipt Date: 20130920
  Transmission Date: 20140515
  Serious: Yes (Other)
  Sender: FDA-Public Use
  Company Number: FR-JNJFOC-20130908114

PATIENT
  Age: 31 Year
  Sex: Male

DRUGS (4)
  1. REMICADE [Suspect]
     Indication: ANKYLOSING SPONDYLITIS
     Dosage: 0.1786 MG/KG
     Route: 042
     Dates: start: 200908
  2. RAMIPRIL [Concomitant]
     Route: 065
  3. CLOBEX [Concomitant]
     Route: 065
  4. DERMOVAL [Concomitant]
     Route: 065

REACTIONS (3)
  - Uveitis [Recovered/Resolved]
  - Visual acuity reduced [Unknown]
  - Dry eye [Unknown]
